FAERS Safety Report 18149522 (Version 1)
Quarter: 2020Q3

REPORT INFORMATION
  Report Type: Other
  Country: BE (occurrence: BE)
  Receive Date: 20200814
  Receipt Date: 20200814
  Transmission Date: 20201103
  Serious: Yes (Other)
  Sender: FDA-Public Use
  Company Number: BE-CELLTRION INC.-2020BE023337

PATIENT

DRUGS (36)
  1. BACTRIM [Concomitant]
     Active Substance: SULFAMETHOXAZOLE\TRIMETHOPRIM
     Indication: PROPHYLAXIS
     Dosage: UNK
     Route: 048
     Dates: start: 20200424, end: 20200430
  2. LONQUEX [Concomitant]
     Active Substance: LIPEGFILGRASTIM
     Dosage: 6 MILLIGRAM
     Route: 058
     Dates: start: 20200425, end: 20200425
  3. ACICLOVIR [Concomitant]
     Active Substance: ACYCLOVIR
     Indication: PROPHYLAXIS
     Dosage: 800 MILLIGRAM
     Route: 048
     Dates: start: 20200511
  4. ONDANSETRON [Concomitant]
     Active Substance: ONDANSETRON
     Dosage: 8 MILLIGRAM, QD
     Route: 042
     Dates: start: 20200424, end: 20200430
  5. LITICAN /00690801/ [Concomitant]
     Active Substance: ALIZAPRIDE
  6. HUMULIN NOS [Concomitant]
     Active Substance: INSULIN HUMAN
     Dosage: UNK
     Route: 058
     Dates: start: 20200423, end: 20200430
  7. BETAMETHASONE VALERATE. [Concomitant]
     Active Substance: BETAMETHASONE VALERATE
     Dosage: UNK UNK, QD
     Route: 048
     Dates: start: 20200424
  8. RITUXIMAB (UNKNOWN) [Suspect]
     Active Substance: RITUXIMAB
     Indication: PERIPHERAL T-CELL LYMPHOMA UNSPECIFIED
     Dosage: UNK
     Route: 065
  9. CYCLOPHOSPHAMIDE. [Suspect]
     Active Substance: CYCLOPHOSPHAMIDE
     Indication: PERIPHERAL T-CELL LYMPHOMA UNSPECIFIED
     Dosage: UNK
     Route: 065
  10. LASIX [Concomitant]
     Active Substance: FUROSEMIDE
     Dosage: UNK
     Route: 042
     Dates: start: 20200423, end: 20200426
  11. FUCICORT LIPID [Concomitant]
     Dosage: UNK UNK, QD
     Route: 061
     Dates: start: 20200424
  12. TRADONAL [Concomitant]
     Active Substance: TRAMADOL HYDROCHLORIDE
     Dosage: 100 MILLIGRAM
     Route: 042
     Dates: start: 20200423
  13. ALLOPURINOL. [Concomitant]
     Active Substance: ALLOPURINOL
     Indication: PROPHYLAXIS
     Dosage: 300 MILLIGRAM, QD
     Route: 048
     Dates: start: 20200424
  14. D VITAL /00318501/ [Concomitant]
     Dosage: UNK UNK, QD
     Route: 048
     Dates: start: 20200401
  15. FLUCONAZOLE. [Concomitant]
     Active Substance: FLUCONAZOLE
     Indication: PROPHYLAXIS
     Dosage: 200 MILLIGRAM, QD
     Route: 048
     Dates: start: 20200424, end: 20200430
  16. MEDROL [Concomitant]
     Active Substance: METHYLPREDNISOLONE
     Dosage: 32 MILLIGRAM, QD
     Route: 048
     Dates: start: 20200429
  17. BACTRIM [Concomitant]
     Active Substance: SULFAMETHOXAZOLE\TRIMETHOPRIM
     Dosage: UNK, 4/WEEK
     Route: 048
     Dates: start: 20200519
  18. PARACETAMOL [Concomitant]
     Active Substance: ACETAMINOPHEN
     Dosage: 1 GRAM, QD
     Route: 042
     Dates: start: 20200423
  19. SERTRALINE [Concomitant]
     Active Substance: SERTRALINE HYDROCHLORIDE
     Dosage: 50 MILLIGRAM, QD
     Route: 048
     Dates: start: 20200407
  20. BETNELAN /00008501/ [Concomitant]
     Dosage: UNK UNK, QD
     Route: 065
     Dates: start: 20200402
  21. ZYRTEC [Concomitant]
     Active Substance: CETIRIZINE HYDROCHLORIDE
     Dosage: 10 MILLIGRAM
     Route: 048
     Dates: start: 20200406
  22. BIOTENE ORAL BALANCE [Concomitant]
     Active Substance: DEVICE\XYLITOL
     Dosage: UNK UNK, QD
     Route: 065
     Dates: start: 20200413
  23. BRENTUXIMAB VEDOTIN [Suspect]
     Active Substance: BRENTUXIMAB VEDOTIN
     Indication: PERIPHERAL T-CELL LYMPHOMA UNSPECIFIED
     Dosage: UNK
     Route: 065
     Dates: start: 20200513, end: 20200701
  24. PREDNISONE. [Suspect]
     Active Substance: PREDNISONE
     Indication: PERIPHERAL T-CELL LYMPHOMA UNSPECIFIED
     Dosage: UNK
     Route: 065
  25. CLEXANE [Concomitant]
     Active Substance: ENOXAPARIN SODIUM
     Dosage: 60 MILLIGRAM, QD
     Route: 058
     Dates: start: 20200423
  26. LACTATED RINGERS SOLUTION [Concomitant]
     Active Substance: CALCIUM CHLORIDE\POTASSIUM CHLORIDE\SODIUM CHLORIDE\SODIUM LACTATE
     Dosage: UNK
     Route: 065
     Dates: start: 20200424
  27. FLUCONAZOLE. [Concomitant]
     Active Substance: FLUCONAZOLE
     Dosage: 200 MILLIGRAM, QD
     Route: 048
     Dates: start: 20200510
  28. ISOPTO TEARS /00445101/ [Concomitant]
     Dosage: 75 MILLIGRAM, QD
     Route: 047
     Dates: start: 20200412
  29. DOXORUBICIN [Suspect]
     Active Substance: DOXORUBICIN
     Indication: PERIPHERAL T-CELL LYMPHOMA UNSPECIFIED
     Dosage: UNK
     Route: 065
  30. OMEPRAZOLE. [Concomitant]
     Active Substance: OMEPRAZOLE
     Indication: PROPHYLAXIS
     Dosage: 40 MILLIGRAM, QD
     Route: 048
     Dates: start: 20200402
  31. MEDROL [Concomitant]
     Active Substance: METHYLPREDNISOLONE
     Dosage: 32 MILLIGRAM, QD
     Route: 048
     Dates: start: 20200425, end: 20200428
  32. ALLOPURINOL. [Concomitant]
     Active Substance: ALLOPURINOL
     Dosage: 300 MILLIGRAM, QD
     Route: 048
     Dates: start: 20200507
  33. MAXIDEX [Concomitant]
     Active Substance: DEXAMETHASONE
     Dosage: 0.1 PERCENT, QD
     Route: 047
     Dates: start: 20200403
  34. OMEPRAZOLE. [Concomitant]
     Active Substance: OMEPRAZOLE
     Dosage: 40 MILLIGRAM, QD
     Route: 048
     Dates: start: 20200507
  35. LAXOBERON [Concomitant]
     Active Substance: SODIUM PICOSULFATE
     Dosage: 7.5 MILLIGRAM
     Route: 042
     Dates: start: 20200423
  36. MOVICOL [Concomitant]
     Active Substance: POLYETHYLENE GLYCOL 3350\POTASSIUM CHLORIDE\SODIUM BICARBONATE\SODIUM CHLORIDE
     Dosage: UNK, QD
     Route: 048
     Dates: start: 20200424

REACTIONS (8)
  - Dehydration [Recovering/Resolving]
  - Rash [Unknown]
  - Off label use [Unknown]
  - Paraneoplastic rash [Unknown]
  - Disease progression [Unknown]
  - Weight decreased [Recovering/Resolving]
  - Asthenia [Unknown]
  - Peripheral T-cell lymphoma unspecified [Unknown]
